FAERS Safety Report 4355645-4 (Version None)
Quarter: 2004Q2

REPORT INFORMATION
  Report Type: 
  Country: None (occurrence: None)
  Receive Date: 20040505
  Receipt Date: 20040311
  Transmission Date: 20050107
  Serious: Yes (Hospitalization)
  Sender: FDA-Public Use
  Company Number: MINM040132

PATIENT
  Age: 50 Year
  Sex: Female
  Weight: 79.3795 kg

DRUGS (9)
  1. ARESTIN [Suspect]
     Indication: PERIODONTITIS
     Dosage: 1 MG SUBGINGIVAL X 3
     Dates: start: 20040224
  2. NIASPAN [Concomitant]
  3. GLUCOPHAGE [Concomitant]
  4. LOTREL [Concomitant]
  5. SERZONE [Concomitant]
  6. LASIX [Concomitant]
  7. ACIPHEX [Concomitant]
  8. TRICORE [Concomitant]
  9. ASPIRIN [Concomitant]

REACTIONS (2)
  - DEHYDRATION [None]
  - HYPERSENSITIVITY [None]
